FAERS Safety Report 10989341 (Version 2)
Quarter: 2015Q2

REPORT INFORMATION
  Report Type: Spontaneous
  Country: US (occurrence: US)
  Receive Date: 20150406
  Receipt Date: 20150421
  Transmission Date: 20150821
  Serious: No
  Sender: FDA-Public Use
  Company Number: US-PFIZER INC-2015114677

PATIENT
  Sex: Female

DRUGS (2)
  1. ADVIL [Suspect]
     Active Substance: IBUPROFEN
     Indication: PAIN
     Dosage: TWO TABLETS EVERY 4-6 HOURS
     Route: 048
  2. ADVIL [Suspect]
     Active Substance: IBUPROFEN
     Dosage: THREE TABLETS AT A TIME
     Route: 048

REACTIONS (1)
  - Drug ineffective [Unknown]
